FAERS Safety Report 5933663-X (Version None)
Quarter: 2008Q4

REPORT INFORMATION
  Report Type: 
  Country: None (occurrence: None)
  Receive Date: 20081029
  Receipt Date: 20081021
  Transmission Date: 20090506
  Serious: Yes (Other)
  Sender: FDA-Public Use
  Company Number: US-ASTRAZENECA-2008UW23396

PATIENT
  Age: 75 Year
  Sex: Female

DRUGS (1)
  1. ATACAND [Suspect]
     Indication: HYPERTENSION
     Route: 048
     Dates: start: 20080723

REACTIONS (4)
  - ALOPECIA [None]
  - DIZZINESS [None]
  - MYALGIA [None]
  - WRIST FRACTURE [None]
